FAERS Safety Report 22237854 (Version 1)
Quarter: 2023Q2

REPORT INFORMATION
  Report Type: Spontaneous
  Country: US (occurrence: None)
  Receive Date: 20230421
  Receipt Date: 20230421
  Transmission Date: 20230721
  Serious: Yes (Death)
  Sender: FDA-Public Use
  Company Number: US-ROCHE-3335273

PATIENT
  Age: 74 Year

DRUGS (2)
  1. HERCEPTIN [Suspect]
     Active Substance: TRASTUZUMAB
     Indication: Intraductal proliferative breast lesion
     Dosage: 14 ML/ MG FOR HERCEPTIN VIALS, ADULT PALLIATIVE-FIRST LINE, COMBO THERAPY
     Route: 042
  2. PERJETA [Suspect]
     Active Substance: PERTUZUMAB
     Indication: Intraductal proliferative breast lesion
     Dosage: PERTUZUMAB 420 MG/14 ML (30 MG/ML) IV SOLN VIALS, ADULT PALLIATIVE-FIRST LINE, COMBO THERAPY, LOADIN
     Route: 042

REACTIONS (2)
  - Off label use [Unknown]
  - Death [Fatal]

NARRATIVE: CASE EVENT DATE: 20230101
